FAERS Safety Report 7594557-X (Version None)
Quarter: 2011Q2

REPORT INFORMATION
  Report Type: 
  Country: None (occurrence: None)
  Receive Date: 20110628
  Receipt Date: 20110617
  Transmission Date: 20111010
  Serious: Yes (Hospitalization)
  Sender: FDA-Public Use
  Company Number: DKLU1071520

PATIENT
  Age: 33 Year
  Sex: Female

DRUGS (2)
  1. COSMEGEN [Suspect]
     Indication: GESTATIONAL TROPHOBLASTIC TUMOUR
     Dosage: 12 UG/KG MICROGRAM(S)/KILOGRAM
  2. METHOTREXATE [Suspect]
     Indication: GESTATIONAL TROPHOBLASTIC TUMOUR
     Dosage: 60 MG MILLIGRAM(S); INTRAMUSCULAR,; 30 MG MILLIGRAM9S), INTRAMUSCULAR
     Route: 030

REACTIONS (8)
  - SUPERIOR SAGITTAL SINUS THROMBOSIS [None]
  - TRANSVERSE SINUS THROMBOSIS [None]
  - SKIN TOXICITY [None]
  - NEUTROPENIA [None]
  - INTRACRANIAL VENOUS SINUS THROMBOSIS [None]
  - UTERINE MASS [None]
  - JUGULAR VEIN THROMBOSIS [None]
  - THERAPEUTIC RESPONSE DECREASED [None]
